FAERS Safety Report 10200976 (Version 1)
Quarter: 2014Q2

REPORT INFORMATION
  Report Type: Report from Study
  Country: BR (occurrence: BR)
  Receive Date: 20140528
  Receipt Date: 20140528
  Transmission Date: 20141212
  Serious: Yes (Other)
  Sender: FDA-Public Use
  Company Number: PHHY2014BR063486

PATIENT
  Sex: Female
  Weight: 86 kg

DRUGS (6)
  1. DIOVAN HCT [Suspect]
     Indication: HYPERTENSION
     Dosage: 1 DF, DAILY(VALS 160 MG, 12.5 MG HCTZ)
     Route: 048
  2. ESPIRONOLACTON [Concomitant]
     Indication: BLOOD PRESSURE ABNORMAL
     Dosage: UNK UKN, UNK
  3. PRIMOGYNA [Concomitant]
     Indication: HORMONE REPLACEMENT THERAPY
     Dosage: UNK UKN, UNK
  4. ROXFLAN [Concomitant]
     Dosage: UNK UKN, UNK
  5. PIROXICAM [Concomitant]
     Indication: BONE DISORDER
     Dosage: UNK UKN, UNK
  6. TENSALIV [Concomitant]
     Indication: BLOOD PRESSURE ABNORMAL
     Dosage: UNK UKN, UNK

REACTIONS (6)
  - Cerebrovascular accident [Recovering/Resolving]
  - Confusional state [Recovering/Resolving]
  - Memory impairment [Recovering/Resolving]
  - Burning sensation [Recovering/Resolving]
  - Erythema [Recovering/Resolving]
  - Dizziness [Recovering/Resolving]
